FAERS Safety Report 4554527-2 (Version None)
Quarter: 2005Q1

REPORT INFORMATION
  Report Type: 
  Country: None (occurrence: None)
  Receive Date: 20050114
  Receipt Date: 20040324
  Transmission Date: 20050727
  Serious: Yes (Death, Hospitalization)
  Sender: FDA-Public Use
  Company Number: GXKR2004US00636

PATIENT
  Age: 48 Year
  Sex: Male

DRUGS (9)
  1. METFORMIN (NGX) (METFORMIN) UNKNOWN [Suspect]
     Indication: DIABETES MELLITUS NON-INSULIN-DEPENDENT
     Dosage: LARGE AMOUNT OF PILLS, ORAL
     Route: 048
  2. GLIPIZIDE [Concomitant]
  3. PIOGLITAZONE HCL [Concomitant]
  4. LISINOPRIL [Concomitant]
  5. ATENOLOL [Concomitant]
  6. SIMVASTATIN [Concomitant]
  7. CLOPIDOGREL BISULFATE [Concomitant]
  8. FLUOXETINE [Concomitant]
  9. ALCOHOL (ETHANOL) [Concomitant]

REACTIONS (10)
  - ALCOHOL USE [None]
  - BLOOD GLUCOSE INCREASED [None]
  - BRONCHOPNEUMONIA [None]
  - COMA [None]
  - COMPLETED SUICIDE [None]
  - DRUG TOXICITY [None]
  - INTENTIONAL SELF-INJURY [None]
  - METABOLIC ACIDOSIS [None]
  - OVERDOSE [None]
  - SKIN LACERATION [None]
